APPROVED DRUG PRODUCT: STALEVO 200
Active Ingredient: CARBIDOPA; ENTACAPONE; LEVODOPA
Strength: 50MG;200MG;200MG
Dosage Form/Route: TABLET;ORAL
Application: N021485 | Product #004 | TE Code: AB
Applicant: ORION PHARMA
Approved: Aug 2, 2007 | RLD: Yes | RS: Yes | Type: RX